FAERS Safety Report 5542981-9 (Version None)
Quarter: 2007Q4

REPORT INFORMATION
  Report Type: 
  Country: None (occurrence: None)
  Receive Date: 20071210
  Receipt Date: 20071002
  Transmission Date: 20080405
  Serious: No
  Sender: FDA-Public Use
  Company Number: US-AMGEN-KDL245914

PATIENT
  Sex: Female

DRUGS (2)
  1. ENBREL [Suspect]
     Indication: RHEUMATOID ARTHRITIS
     Dates: start: 20071001
  2. METHOTREXATE [Concomitant]
     Route: 048
     Dates: start: 20061001

REACTIONS (2)
  - DIZZINESS [None]
  - NAUSEA [None]
